FAERS Safety Report 7651169-7 (Version None)
Quarter: 2011Q3

REPORT INFORMATION
  Report Type: 
  Country: None (occurrence: None)
  Receive Date: 20110802
  Receipt Date: 20110721
  Transmission Date: 20111222
  Serious: Yes (Hospitalization)
  Sender: FDA-Public Use
  Company Number: US-JNJFOC-20110710657

PATIENT
  Sex: Male
  Weight: 175.9 kg

DRUGS (5)
  1. REMICADE [Suspect]
     Indication: INFLAMMATORY BOWEL DISEASE
     Route: 042
     Dates: start: 20060404
  2. SEROQUEL [Concomitant]
  3. ZEGERID [Concomitant]
  4. RISPERDAL [Concomitant]
  5. REMICADE [Suspect]
     Route: 042
     Dates: start: 20090831, end: 20090831

REACTIONS (1)
  - RECTAL HAEMORRHAGE [None]
